FAERS Safety Report 7126211-2 (Version None)
Quarter: 2010Q4

REPORT INFORMATION
  Report Type: 
  Country: None (occurrence: None)
  Receive Date: 20101129
  Receipt Date: 20101118
  Transmission Date: 20110411
  Serious: Yes (Other)
  Sender: FDA-Public Use
  Company Number: BR-SANOFI-AVENTIS-2010SA070369

PATIENT
  Age: 25 Year
  Sex: Female
  Weight: 56 kg

DRUGS (2)
  1. CLEXANE SYRINGES [Suspect]
     Indication: THROMBOSIS PROPHYLAXIS
     Route: 065
     Dates: start: 20000101, end: 20000101
  2. METICORTEN [Concomitant]
     Route: 048
     Dates: start: 19980101

REACTIONS (3)
  - ABORTION [None]
  - AMNIORRHOEA [None]
  - DRUG EXPOSURE DURING PREGNANCY [None]
